FAERS Safety Report 5504448-3 (Version None)
Quarter: 2007Q4

REPORT INFORMATION
  Report Type: 
  Country: None (occurrence: None)
  Receive Date: 20071030
  Receipt Date: 20070806
  Transmission Date: 20080405
  Serious: No
  Sender: FDA-Public Use
  Company Number: 266306

PATIENT
  Age: 60 Year
  Sex: Male

DRUGS (4)
  1. LEVEMIR [Suspect]
     Indication: INSULIN-REQUIRING TYPE II DIABETES MELLITUS
     Dosage: 25 IU, QD, SUBCUTANEOUS
     Route: 058
     Dates: start: 20070713, end: 20070716
  2. GLUMET /00082701/ (METFORMIN) [Concomitant]
  3. ACTOS /01460201/ (PIOGLITAZONE) [Concomitant]
  4. VYTORIN [Concomitant]

REACTIONS (4)
  - BALANCE DISORDER [None]
  - BLOOD GLUCOSE INCREASED [None]
  - DIZZINESS [None]
  - FEELING DRUNK [None]
